FAERS Safety Report 6811962-7 (Version None)
Quarter: 2010Q2

REPORT INFORMATION
  Report Type: 
  Country: None (occurrence: None)
  Receive Date: 20100628
  Receipt Date: 20100610
  Transmission Date: 20101027
  Serious: Yes (Disabling)
  Sender: FDA-Public Use
  Company Number: GB-ACCORD-004454

PATIENT
  Age: 62 Year
  Sex: Female

DRUGS (3)
  1. SIMVASTATIN [Suspect]
     Indication: BLOOD CHOLESTEROL INCREASED
     Dosage: 10.00-MG-/ORAL
     Route: 048
     Dates: start: 20090709, end: 20091101
  2. ANASTROZOLE [Concomitant]
  3. OMEPRAZOLE [Concomitant]

REACTIONS (2)
  - GLOSSODYNIA [None]
  - ORAL PAIN [None]
